FAERS Safety Report 5098316-1 (Version None)
Quarter: 2006Q3

REPORT INFORMATION
  Report Type: 
  Country: None (occurrence: None)
  Receive Date: 20060906
  Receipt Date: 20060630
  Transmission Date: 20061208
  Serious: Yes (Other)
  Sender: FDA-Public Use
  Company Number: US-GLAXOSMITHKLINE-A0610993A

PATIENT
  Age: 48 Year
  Sex: Male
  Weight: 72.7 kg

DRUGS (2)
  1. REQUIP [Suspect]
     Indication: RESTLESS LEGS SYNDROME
     Dosage: 1MG AT NIGHT
     Route: 048
     Dates: start: 20060601, end: 20060616
  2. NO CONCURRENT MEDICATION [Concomitant]

REACTIONS (4)
  - DIZZINESS [None]
  - GASTROINTESTINAL DISORDER [None]
  - HALLUCINATION, VISUAL [None]
  - PHARMACEUTICAL PRODUCT COMPLAINT [None]
